FAERS Safety Report 6718642-7 (Version None)
Quarter: 2010Q2

REPORT INFORMATION
  Report Type: 
  Country: None (occurrence: None)
  Receive Date: 20100504
  Receipt Date: 20100118
  Transmission Date: 20101027
  Serious: Yes (Life-Threatening, Hospitalization, Disabling)
  Sender: FDA-Public Use
  Company Number: 230001M10PRT

PATIENT
  Age: 48 Year
  Sex: Female
  Weight: 62 kg

DRUGS (2)
  1. REBIF [Suspect]
     Indication: MULTIPLE SCLEROSIS
     Dosage: 3 IN 1 WK, SUBCUTANEOUS
     Route: 058
     Dates: start: 20090323, end: 20091203
  2. ACETAMINOPHEN [Concomitant]

REACTIONS (3)
  - HAEMORRHAGIC STROKE [None]
  - HYDROCEPHALUS [None]
  - RESPIRATORY TRACT INFECTION [None]
